FAERS Safety Report 23276523 (Version 1)
Quarter: 2023Q4

REPORT INFORMATION
  Report Type: Spontaneous
  Country: AT (occurrence: AT)
  Receive Date: 20231208
  Receipt Date: 20231208
  Transmission Date: 20240110
  Serious: Yes (Other)
  Sender: FDA-Public Use
  Company Number: AT-ORG100014127-2023001074

PATIENT
  Age: 80 Year
  Sex: Male
  Weight: 88 kg

DRUGS (6)
  1. LYSODREN [Suspect]
     Active Substance: MITOTANE
     Indication: Adrenal gland cancer
     Dosage: 3-3-3
     Route: 048
     Dates: start: 20230615, end: 202309
  2. HYDROCORTISONE [Concomitant]
     Active Substance: HYDROCORTISONE
     Indication: Product used for unknown indication
     Dosage: 10 MG, 2-2-0
  3. ENALAPRIL [Concomitant]
     Active Substance: ENALAPRIL
     Indication: Product used for unknown indication
  4. CITALOPRAM [Concomitant]
     Active Substance: CITALOPRAM HYDROBROMIDE
     Indication: Product used for unknown indication
  5. Ezeato [Concomitant]
     Indication: Product used for unknown indication
  6. Cereboktan [Concomitant]
     Indication: Product used for unknown indication

REACTIONS (4)
  - Neuropathy peripheral [Unknown]
  - Malignant neoplasm progression [Unknown]
  - Gait disturbance [Unknown]
  - Dizziness [Unknown]

NARRATIVE: CASE EVENT DATE: 20230101
